FAERS Safety Report 4430737-X (Version None)
Quarter: 2004Q3

REPORT INFORMATION
  Report Type: 
  Country: None (occurrence: None)
  Receive Date: 20040819
  Receipt Date: 20040819
  Transmission Date: 20050211
  Serious: Yes (Life-Threatening, Hospitalization)
  Sender: FDA-Public Use
  Company Number: None

PATIENT
  Age: 52 Year
  Sex: Male
  Weight: 120 kg

DRUGS (1)
  1. ORLAAM [Suspect]
     Indication: DRUG DEPENDENCE
     Dosage: 110/110/150 3 TIMES W ORAL
     Route: 048
     Dates: start: 20040326, end: 20040406

REACTIONS (2)
  - SYNCOPE [None]
  - TORSADE DE POINTES [None]
